FAERS Safety Report 7473381-2 (Version None)
Quarter: 2011Q2

REPORT INFORMATION
  Report Type: 
  Country: None (occurrence: None)
  Receive Date: 20110503
  Receipt Date: 20110418
  Transmission Date: 20111010
  Serious: Yes (Other)
  Sender: FDA-Public Use
  Company Number: AE 2011-182

PATIENT
  Age: 34 Year
  Sex: Male

DRUGS (4)
  1. OXYCONTIN [Concomitant]
  2. FENTANYL [Concomitant]
  3. PRIALT [Suspect]
     Indication: PAIN
     Dosage: 0.01-0.125 UG/HR; INTRATHECAL
     Route: 037
     Dates: start: 20110101
  4. OXYCODONE HCL [Concomitant]

REACTIONS (6)
  - CHILLS [None]
  - FEELING COLD [None]
  - MIDDLE INSOMNIA [None]
  - HEADACHE [None]
  - PAIN [None]
  - BURNING SENSATION [None]
